FAERS Safety Report 5669321-9 (Version None)
Quarter: 2008Q1

REPORT INFORMATION
  Report Type: 
  Country: None (occurrence: None)
  Receive Date: 20080317
  Receipt Date: 20080306
  Transmission Date: 20080703
  Serious: Yes (Hospitalization)
  Sender: FDA-Public Use
  Company Number: PHHY2008JP02821

PATIENT

DRUGS (3)
  1. NEORAL [Suspect]
     Indication: RENAL TRANSPLANT
     Route: 065
  2. SIMULECT [Suspect]
     Indication: RENAL TRANSPLANT
     Route: 042
  3. METHYLPREDNISOLONE [Suspect]
     Indication: RENAL TRANSPLANT

REACTIONS (3)
  - HYDRONEPHROSIS [None]
  - REMOVAL OF TRANSPLANTED ORGAN [None]
  - URINARY TRACT INFECTION [None]
